FAERS Safety Report 16251113 (Version 2)
Quarter: 2020Q3

REPORT INFORMATION
  Report Type: Spontaneous
  Country: US (occurrence: US)
  Receive Date: 20190429
  Receipt Date: 20200722
  Transmission Date: 20201102
  Serious: Yes (Hospitalization)
  Sender: FDA-Public Use
  Company Number: US-JNJFOC-20190425100

PATIENT
  Age: 63 Year
  Sex: Male
  Weight: 88.8 kg

DRUGS (1)
  1. XARELTO [Suspect]
     Active Substance: RIVAROXABAN
     Indication: THROMBOSIS PROPHYLAXIS
     Route: 048
     Dates: start: 20161122, end: 20161126

REACTIONS (1)
  - Haematoma muscle [Unknown]

NARRATIVE: CASE EVENT DATE: 20161122
